FAERS Safety Report 9866468 (Version 1)
Quarter: 2014Q1

REPORT INFORMATION
  Report Type: Spontaneous
  Country: US (occurrence: US)
  Receive Date: 20140204
  Receipt Date: 20140204
  Transmission Date: 20141002
  Serious: No
  Sender: FDA-Public Use
  Company Number: US-009507513-1402USA000249

PATIENT
  Age: 63 Year
  Sex: Male

DRUGS (7)
  1. DULERA [Suspect]
     Indication: ASTHMA
     Dosage: 2 PUFFS, Q12H
     Route: 055
     Dates: start: 2013
  2. NABUMETONE [Concomitant]
     Indication: BACK PAIN
  3. NABUMETONE [Concomitant]
     Indication: NECK PAIN
  4. SINGULAIR [Concomitant]
     Route: 048
  5. PROSCAR [Concomitant]
     Route: 048
  6. LIPITOR [Concomitant]
  7. CLARITIN [Concomitant]
     Dosage: UNK
     Route: 048

REACTIONS (4)
  - Cough [Unknown]
  - Wheezing [Unknown]
  - Drug dose omission [Unknown]
  - Product quality issue [Unknown]
